FAERS Safety Report 19155387 (Version 12)
Quarter: 2024Q4

REPORT INFORMATION
  Report Type: Spontaneous
  Country: CA (occurrence: CA)
  Receive Date: 20210419
  Receipt Date: 20241217
  Transmission Date: 20250114
  Serious: Yes (Hospitalization, Other)
  Sender: BAUSCH AND LOMB
  Company Number: CA-BAUSCH-BL-2021-012331

PATIENT
  Age: 75 Year
  Sex: Male

DRUGS (94)
  1. DILTIAZEM HYDROCHLORIDE [Suspect]
     Active Substance: DILTIAZEM HYDROCHLORIDE
     Indication: Angina pectoris
     Route: 048
     Dates: start: 20181219
  2. DILTIAZEM HYDROCHLORIDE [Suspect]
     Active Substance: DILTIAZEM HYDROCHLORIDE
     Route: 048
  3. NITROGLYCERIN [Suspect]
     Active Substance: NITROGLYCERIN
     Indication: Angina pectoris
     Dosage: 1 MG, QD
  4. NITROGLYCERIN [Suspect]
     Active Substance: NITROGLYCERIN
     Dosage: GLYCERYL TRINITRATE
     Route: 061
  5. NITROGLYCERIN [Suspect]
     Active Substance: NITROGLYCERIN
     Dosage: GLYCERYL TRINITRATE
     Route: 061
  6. DILTIAZEM [Suspect]
     Active Substance: DILTIAZEM
     Indication: Angina pectoris
     Route: 048
  7. DILTIAZEM [Suspect]
     Active Substance: DILTIAZEM
     Route: 048
  8. DILTIAZEM [Suspect]
     Active Substance: DILTIAZEM
     Route: 048
  9. DILTIAZEM [Suspect]
     Active Substance: DILTIAZEM
     Route: 048
  10. DILTIAZEM [Suspect]
     Active Substance: DILTIAZEM
     Route: 048
  11. FUROSEMIDE [Suspect]
     Active Substance: FUROSEMIDE
     Indication: Diuretic therapy
     Dosage: 20 MG, QD
     Route: 048
     Dates: start: 20060215
  12. FUROSEMIDE [Suspect]
     Active Substance: FUROSEMIDE
     Dosage: 200 MG, ONCE DAILY (1 IN 1 DAYS)
     Route: 048
     Dates: start: 20060215
  13. FUROSEMIDE [Suspect]
     Active Substance: FUROSEMIDE
     Route: 065
  14. FUROSEMIDE [Suspect]
     Active Substance: FUROSEMIDE
     Dosage: 20 MG, QD
     Route: 048
  15. FUROSEMIDE [Suspect]
     Active Substance: FUROSEMIDE
     Dosage: 20 MG
     Route: 048
  16. JARDIANCE [Suspect]
     Active Substance: EMPAGLIFLOZIN
     Indication: Cardiac failure
     Route: 048
     Dates: start: 20180725
  17. JARDIANCE [Suspect]
     Active Substance: EMPAGLIFLOZIN
     Dosage: 20 MG, QD
     Route: 048
     Dates: start: 20180725, end: 20201106
  18. JARDIANCE [Suspect]
     Active Substance: EMPAGLIFLOZIN
     Route: 065
  19. JARDIANCE [Suspect]
     Active Substance: EMPAGLIFLOZIN
     Route: 048
  20. JARDIANCE [Suspect]
     Active Substance: EMPAGLIFLOZIN
     Route: 065
  21. JARDIANCE [Suspect]
     Active Substance: EMPAGLIFLOZIN
     Dosage: 20 MG, QD
     Route: 048
  22. METOPROLOL FUMARATE [Suspect]
     Active Substance: METOPROLOL FUMARATE
     Indication: Cardiac failure
     Dosage: 200 MG, ONCE DAILY (1 IN 1 DAYS)
     Route: 048
     Dates: start: 20180103
  23. METOPROLOL FUMARATE [Suspect]
     Active Substance: METOPROLOL FUMARATE
     Route: 048
     Dates: start: 20180103
  24. METOPROLOL FUMARATE [Suspect]
     Active Substance: METOPROLOL FUMARATE
     Route: 048
     Dates: start: 20180103
  25. METOPROLOL FUMARATE [Suspect]
     Active Substance: METOPROLOL FUMARATE
     Route: 048
  26. METOPROLOL FUMARATE [Suspect]
     Active Substance: METOPROLOL FUMARATE
     Route: 048
  27. AMIODARONE HYDROCHLORIDE [Suspect]
     Active Substance: AMIODARONE HYDROCHLORIDE
     Indication: Atrial fibrillation
     Dosage: 200 MG, QD
     Route: 048
     Dates: start: 20180214, end: 20201110
  28. AMIODARONE HYDROCHLORIDE [Suspect]
     Active Substance: AMIODARONE HYDROCHLORIDE
     Dosage: 10 MG, QD (10 MG, ONCE DAILY (1 IN 1 DAYS))
     Route: 048
     Dates: start: 20180214, end: 20201110
  29. AMIODARONE HYDROCHLORIDE [Suspect]
     Active Substance: AMIODARONE HYDROCHLORIDE
     Route: 065
  30. AMIODARONE HYDROCHLORIDE [Suspect]
     Active Substance: AMIODARONE HYDROCHLORIDE
     Route: 048
  31. AMLODIPINE [Suspect]
     Active Substance: AMLODIPINE BESYLATE
     Indication: Cardiac failure
     Dosage: (SALT NOT SPECIFIED), 10 MG, QD
     Route: 048
     Dates: start: 20180214, end: 20201110
  32. AMLODIPINE [Suspect]
     Active Substance: AMLODIPINE BESYLATE
     Route: 048
     Dates: start: 20180214, end: 20201110
  33. AMLODIPINE [Suspect]
     Active Substance: AMLODIPINE BESYLATE
     Dosage: (SALT NOT SPECIFIED), 10 MG, QD
     Route: 048
     Dates: start: 20180214, end: 20201110
  34. AMLODIPINE [Suspect]
     Active Substance: AMLODIPINE BESYLATE
     Dosage: AMLODIPINE BESYLATE
     Route: 048
  35. AMLODIPINE [Suspect]
     Active Substance: AMLODIPINE BESYLATE
     Dosage: AMLODIPINE BESYLATE
     Route: 048
  36. AMLODIPINE [Suspect]
     Active Substance: AMLODIPINE BESYLATE
     Dosage: AMLODIPINE BESYLATE
     Route: 065
  37. AMLODIPINE [Suspect]
     Active Substance: AMLODIPINE BESYLATE
     Dosage: AMLODIPINE BESILATE
     Route: 065
  38. AMLODIPINE [Suspect]
     Active Substance: AMLODIPINE BESYLATE
     Dosage: AMLODIPINE BESYLATE
     Route: 048
  39. AMLODIPINE [Suspect]
     Active Substance: AMLODIPINE BESYLATE
     Dosage: AMLODIPINE BESYLATE
     Route: 048
  40. MORNIFLUMATE [Suspect]
     Active Substance: MORNIFLUMATE
     Indication: Benign prostatic hyperplasia
     Dosage: 0.4 MG, QD
     Route: 048
     Dates: start: 20110811
  41. MORNIFLUMATE [Suspect]
     Active Substance: MORNIFLUMATE
     Indication: Benign prostatic hyperplasia
     Dosage: 0.4 MG, QD
     Route: 048
     Dates: start: 20110811
  42. MORNIFLUMATE [Suspect]
     Active Substance: MORNIFLUMATE
     Indication: Prostatomegaly
  43. METOPROLOL [Suspect]
     Active Substance: METOPROLOL
     Indication: Cardiac failure
     Dosage: METOPROLOL SALT NOT SPECIFIED, 200 MG, QD
     Route: 065
  44. METOPROLOL [Suspect]
     Active Substance: METOPROLOL
     Indication: Cardiac failure
     Dosage: METOPROLOL SALT NOT SPECIFIED, 200 MG, QD
     Route: 048
     Dates: start: 20180103
  45. METOPROLOL [Suspect]
     Active Substance: METOPROLOL
     Dosage: METOPROLOL SALT NOT SPECIFIED, 200 MG, QD
     Route: 048
     Dates: start: 20180103
  46. METOPROLOL [Suspect]
     Active Substance: METOPROLOL
     Dosage: METOPROLOL SALT NOT SPECIFIED, 200 MG, QD
     Route: 048
  47. METOPROLOL [Suspect]
     Active Substance: METOPROLOL
     Dosage: METOPROLOL TARTRATE
     Route: 048
     Dates: start: 20180103
  48. METOPROLOL [Suspect]
     Active Substance: METOPROLOL
     Dosage: METOPROLOL TARTRATE
     Route: 048
     Dates: start: 20180103
  49. METOPROLOL [Suspect]
     Active Substance: METOPROLOL
     Route: 065
  50. METOPROLOL [Suspect]
     Active Substance: METOPROLOL
     Route: 048
  51. METOPROLOL [Suspect]
     Active Substance: METOPROLOL
     Route: 048
  52. METOPROLOL [Suspect]
     Active Substance: METOPROLOL
     Route: 048
  53. TAMSULOSIN HYDROCHLORIDE [Suspect]
     Active Substance: TAMSULOSIN HYDROCHLORIDE
     Indication: Prostatomegaly
     Dosage: 0.4 MG, QD
     Route: 048
  54. CANDESARTAN [Suspect]
     Active Substance: CANDESARTAN
     Indication: Cardiac failure
     Route: 048
  55. CANDESARTAN [Suspect]
     Active Substance: CANDESARTAN
     Indication: Product used for unknown indication
     Dosage: 2.5 MG, QD
     Route: 048
     Dates: start: 20180920
  56. CANDESARTAN [Suspect]
     Active Substance: CANDESARTAN
     Route: 065
  57. CANDESARTAN [Suspect]
     Active Substance: CANDESARTAN
     Dosage: CANDESARTAN CILEXETIL
     Route: 048
     Dates: start: 20180920
  58. CANDESARTAN [Suspect]
     Active Substance: CANDESARTAN
     Dosage: CANDESARTAN CILEXETIL
     Route: 048
     Dates: start: 20180920
  59. CANDESARTAN [Suspect]
     Active Substance: CANDESARTAN
     Dosage: CANDESARTAN CILEXETIL
     Route: 065
  60. CANDESARTAN [Suspect]
     Active Substance: CANDESARTAN
     Dosage: CANDESARTAN CILEXETIL
     Route: 048
  61. CANDESARTAN [Suspect]
     Active Substance: CANDESARTAN
     Route: 048
  62. CANDESARTAN [Suspect]
     Active Substance: CANDESARTAN
     Dosage: CANDESARTAN CILEXETIL
     Route: 048
  63. CANDESARTAN [Suspect]
     Active Substance: CANDESARTAN
     Dosage: CANDESARTAN CILEXETIL
     Route: 048
  64. TAMSULOSIN [Suspect]
     Active Substance: TAMSULOSIN
     Indication: Prostatomegaly
     Route: 048
  65. TAMSULOSIN [Suspect]
     Active Substance: TAMSULOSIN
     Indication: Restless legs syndrome
     Route: 065
  66. TAMSULOSIN [Suspect]
     Active Substance: TAMSULOSIN
     Indication: Benign prostatic hyperplasia
     Dosage: TAMSULOSIN HYDROCHLORIDE
     Route: 048
  67. PRAMIPEXOLE [Suspect]
     Active Substance: PRAMIPEXOLE\PRAMIPEXOLE DIHYDROCHLORIDE
     Indication: Prostatomegaly
     Route: 048
  68. PRAMIPEXOLE [Suspect]
     Active Substance: PRAMIPEXOLE\PRAMIPEXOLE DIHYDROCHLORIDE
     Indication: Restless legs syndrome
     Dosage: PRAMIPEXOLE DIHYDROCHLORIDE
     Route: 048
     Dates: start: 20190716
  69. PRAMIPEXOLE [Suspect]
     Active Substance: PRAMIPEXOLE\PRAMIPEXOLE DIHYDROCHLORIDE
     Dosage: PRAMIPEXOLE DIHYDROCHLORIDE
     Route: 048
  70. PRAMIPEXOLE [Suspect]
     Active Substance: PRAMIPEXOLE\PRAMIPEXOLE DIHYDROCHLORIDE
     Dosage: PRAMIPEXOLE DIHYDROCHLORIDE
     Route: 048
  71. PRAMIPEXOLE [Suspect]
     Active Substance: PRAMIPEXOLE\PRAMIPEXOLE DIHYDROCHLORIDE
     Route: 048
  72. PRAMIPEXOLE [Suspect]
     Active Substance: PRAMIPEXOLE\PRAMIPEXOLE DIHYDROCHLORIDE
     Dosage: DOSAGE FORM - NOT SPECIFIED
     Route: 048
  73. AMLODIPINE MESYLATE [Suspect]
     Active Substance: AMLODIPINE MESYLATE
     Indication: Cardiac failure
     Route: 065
  74. MIRAPEX [Suspect]
     Active Substance: PRAMIPEXOLE DIHYDROCHLORIDE
     Indication: Restless legs syndrome
     Route: 048
     Dates: start: 20190716
  75. MIRAPEX [Suspect]
     Active Substance: PRAMIPEXOLE DIHYDROCHLORIDE
     Route: 048
  76. EMPAGLIFLOZIN [Suspect]
     Active Substance: EMPAGLIFLOZIN
     Indication: Product used for unknown indication
     Route: 065
  77. AMIODARONE [Suspect]
     Active Substance: AMIODARONE
     Indication: Atrial fibrillation
     Route: 048
  78. AMIODARONE [Suspect]
     Active Substance: AMIODARONE
     Indication: Product used for unknown indication
     Route: 048
  79. CARDIZEM [Suspect]
     Active Substance: DILTIAZEM HYDROCHLORIDE
     Indication: Angina pectoris
     Route: 048
  80. CARDIZEM [Suspect]
     Active Substance: DILTIAZEM HYDROCHLORIDE
     Route: 048
  81. CARDIZEM [Suspect]
     Active Substance: DILTIAZEM HYDROCHLORIDE
     Route: 048
  82. RIVAROXABAN [Concomitant]
     Active Substance: RIVAROXABAN
     Indication: Coronary artery disease
     Route: 048
     Dates: start: 20180214
  83. RIVAROXABAN [Concomitant]
     Active Substance: RIVAROXABAN
     Route: 048
  84. RIVAROXABAN [Concomitant]
     Active Substance: RIVAROXABAN
     Dosage: DOSAGE FORM - NOT SPECIFIED
     Route: 048
  85. ROSUVASTATIN CALCIUM [Concomitant]
     Active Substance: ROSUVASTATIN CALCIUM
     Indication: Dyslipidaemia
     Dosage: 20 MG, QD
     Route: 048
     Dates: start: 20120524
  86. ROSUVASTATIN CALCIUM [Concomitant]
     Active Substance: ROSUVASTATIN CALCIUM
     Route: 048
  87. ROSUVASTATIN CALCIUM [Concomitant]
     Active Substance: ROSUVASTATIN CALCIUM
     Route: 065
  88. ROSUVASTATIN CALCIUM [Concomitant]
     Active Substance: ROSUVASTATIN CALCIUM
     Route: 048
  89. TRAZODONE [Concomitant]
     Active Substance: TRAZODONE HYDROCHLORIDE
     Indication: Antidepressant therapy
     Dosage: 50 MG, QD
     Route: 048
     Dates: start: 20180214
  90. TRAZODONE [Concomitant]
     Active Substance: TRAZODONE HYDROCHLORIDE
     Route: 048
  91. BICALUTAMIDE [Concomitant]
     Active Substance: BICALUTAMIDE
     Indication: Neoplasm malignant
     Dosage: 50 MG, QD
     Route: 048
  92. CLOPIDOGREL [Concomitant]
     Active Substance: CLOPIDOGREL BISULFATE
     Indication: Cardiac failure
     Route: 048
     Dates: start: 20180404
  93. EZETIMIBE [Concomitant]
     Active Substance: EZETIMIBE
     Indication: Dyslipidaemia
     Route: 048
     Dates: start: 20180418
  94. CRESTOR [Concomitant]
     Active Substance: ROSUVASTATIN CALCIUM
     Indication: Dyslipidaemia
     Route: 048
     Dates: start: 20120524

REACTIONS (5)
  - Adrenal insufficiency [Not Recovered/Not Resolved]
  - Hyperthyroidism [Not Recovered/Not Resolved]
  - Troponin increased [Not Recovered/Not Resolved]
  - Hypotension [Not Recovered/Not Resolved]
  - Off label use [Not Recovered/Not Resolved]

NARRATIVE: CASE EVENT DATE: 20201101
